FAERS Safety Report 5451391-4 (Version None)
Quarter: 2007Q3

REPORT INFORMATION
  Report Type: 
  Country: None (occurrence: None)
  Receive Date: 20070911
  Receipt Date: 20070911
  Transmission Date: 20080115
  Serious: Yes (Life-Threatening)
  Sender: FDA-Public Use
  Company Number: None

PATIENT
  Age: 49 Year
  Sex: Female
  Weight: 77.1115 kg

DRUGS (2)
  1. PROMETRIUM [Suspect]
     Indication: ENDOMETRIAL HYPERPLASIA
     Dosage: 200 MG DAILY /12 DAYS/ MO
     Dates: start: 20061001, end: 20061012
  2. PROMETRIUM [Suspect]
     Indication: PROPHYLAXIS
     Dosage: 200 MG DAILY /12 DAYS/ MO
     Dates: start: 20061001, end: 20061012

REACTIONS (2)
  - BREAST CANCER [None]
  - INCORRECT DOSE ADMINISTERED [None]
